FAERS Safety Report 16663856 (Version 1)
Quarter: 2019Q3

REPORT INFORMATION
  Report Type: Spontaneous
  Country: US (occurrence: US)
  Receive Date: 20190802
  Receipt Date: 20190802
  Transmission Date: 20191004
  Serious: Yes (Death, Other)
  Sender: FDA-Public Use
  Company Number: US-FRESENIUS KABI-FK201908475

PATIENT
  Age: 59 Year
  Sex: Male
  Weight: 118 kg

DRUGS (7)
  1. ORITAVANCIN. [Suspect]
     Active Substance: ORITAVANCIN
     Route: 042
  2. AMPICILLIN (MANUFACTURER UNKNOWN) [Suspect]
     Active Substance: AMPICILLIN
     Indication: ENTEROCOCCAL INFECTION
     Route: 042
  3. TIGECYCLINE (MANUFACTURER UNKNOWN) [Suspect]
     Active Substance: TIGECYCLINE
     Indication: ENTEROCOCCAL INFECTION
     Dosage: UNKNOWN
     Route: 065
  4. VANCOMYCIN (MANUFACTURER UNKNOWN) [Suspect]
     Active Substance: VANCOMYCIN
     Indication: STAPHYLOCOCCAL INFECTION
     Dosage: UNKNOWN
     Route: 042
  5. DALFOPRISTIN/QUINUPRISTIN [Concomitant]
     Indication: ENTEROCOCCAL INFECTION
     Dosage: UNKNOWN
     Route: 065
  6. DAPTOMYCIN (MANUFACTURER UNKNOWN) [Suspect]
     Active Substance: DAPTOMYCIN
     Indication: STAPHYLOCOCCAL INFECTION
     Route: 042
  7. ORITAVANCIN. [Suspect]
     Active Substance: ORITAVANCIN
     Indication: ENTEROCOCCAL INFECTION
     Route: 042

REACTIONS (6)
  - Enterococcal infection [Unknown]
  - Drug resistance [Unknown]
  - Staphylococcal infection [Unknown]
  - Device related infection [Unknown]
  - Acute kidney injury [Fatal]
  - Nausea [Unknown]
